FAERS Safety Report 25180923 (Version 1)
Quarter: 2025Q2

REPORT INFORMATION
  Report Type: Spontaneous
  Country: US (occurrence: US)
  Receive Date: 20250409
  Receipt Date: 20250409
  Transmission Date: 20250717
  Serious: No
  Sender: NOVARTIS
  Company Number: US-002147023-NVSC2025US056569

PATIENT
  Sex: Male

DRUGS (5)
  1. SANDOSTATIN LAR DEPOT [Suspect]
     Active Substance: OCTREOTIDE ACETATE
     Indication: Product used for unknown indication
     Route: 065
  2. SANDOSTATIN LAR DEPOT [Suspect]
     Active Substance: OCTREOTIDE ACETATE
  3. SANDOSTATIN LAR DEPOT [Suspect]
     Active Substance: OCTREOTIDE ACETATE
  4. METFORMIN [Concomitant]
     Active Substance: METFORMIN HYDROCHLORIDE
     Indication: Product used for unknown indication
     Route: 065
  5. MELATONIN [Concomitant]
     Active Substance: MELATONIN
     Indication: Product used for unknown indication
     Route: 065

REACTIONS (12)
  - Ear congestion [Unknown]
  - Pollakiuria [Unknown]
  - Asthenia [Unknown]
  - Hypoacusis [Unknown]
  - Dysphagia [Unknown]
  - Eating disorder [Unknown]
  - Flatulence [Unknown]
  - Urinary tract infection [Unknown]
  - Weight decreased [Unknown]
  - Dizziness [Unknown]
  - Dry mouth [Unknown]
  - Nervousness [Unknown]
